FAERS Safety Report 20384923 (Version 1)
Quarter: 2022Q1

REPORT INFORMATION
  Report Type: Spontaneous
  Country: US (occurrence: None)
  Receive Date: 20220127
  Receipt Date: 20220127
  Transmission Date: 20220423
  Serious: Yes (Hospitalization)
  Sender: FDA-Public Use
  Company Number: None

PATIENT
  Age: 66 Year
  Sex: Male

DRUGS (1)
  1. HARVONI [Suspect]
     Active Substance: LEDIPASVIR\SOFOSBUVIR
     Dosage: OTHER QUANTITY : 90-400MG;?FREQUENCY : DAILY;?
     Route: 048
     Dates: start: 202112

REACTIONS (3)
  - Diarrhoea [None]
  - Colitis [None]
  - COVID-19 [None]

NARRATIVE: CASE EVENT DATE: 20220117
